FAERS Safety Report 8176316-2 (Version None)
Quarter: 2012Q1

REPORT INFORMATION
  Report Type: 
  Country: None (occurrence: None)
  Receive Date: 20120301
  Receipt Date: 20120229
  Transmission Date: 20120608
  Serious: Yes (Other)
  Sender: FDA-Public Use
  Company Number: US-BAYER-2012-020175

PATIENT
  Age: 36 Year
  Sex: Female

DRUGS (2)
  1. DROSPIRENONE AND ETHINYL ESTRADIOL [Suspect]
     Dosage: UNK
     Dates: start: 20050101, end: 20100901
  2. YASMIN [Suspect]
     Dosage: UNK
     Dates: start: 20050101, end: 20100901

REACTIONS (1)
  - GALLBLADDER DISORDER [None]
